FAERS Safety Report 12439010 (Version 1)
Quarter: 2016Q2

REPORT INFORMATION
  Report Type: Spontaneous
  Country: US (occurrence: US)
  Receive Date: 20160606
  Receipt Date: 20160606
  Transmission Date: 20160815
  Serious: No
  Sender: FDA-Public Use
  Company Number: US-009507513-1605USA012697

PATIENT
  Age: 72 Year
  Sex: Female

DRUGS (3)
  1. BELSOMRA [Suspect]
     Active Substance: SUVOREXANT
     Indication: INSOMNIA
     Dosage: 20 MG, HS
     Route: 048
     Dates: start: 20160524
  2. PREDNISONE. [Concomitant]
     Active Substance: PREDNISONE
  3. ZOCOR [Concomitant]
     Active Substance: SIMVASTATIN

REACTIONS (3)
  - Abnormal dreams [Unknown]
  - Drug ineffective [Unknown]
  - Poor quality sleep [Unknown]

NARRATIVE: CASE EVENT DATE: 20160524
